FAERS Safety Report 9278703 (Version 1)
Quarter: 2013Q2

REPORT INFORMATION
  Report Type: Spontaneous
  Country: US (occurrence: None)
  Receive Date: 20130506
  Receipt Date: 20130506
  Transmission Date: 20140414
  Serious: Yes (Other)
  Sender: FDA-Public Use
  Company Number: None

PATIENT
  Age: 55 Year
  Sex: Female
  Weight: 84.37 kg

DRUGS (2)
  1. MEXILETINE [Suspect]
     Indication: MYOTONIA CONGENITA
  2. MEXILETINE [Suspect]
     Indication: ARRHYTHMIA

REACTIONS (3)
  - Hypersensitivity [None]
  - Rash erythematous [None]
  - Pruritus [None]
